FAERS Safety Report 14338987 (Version 1)
Quarter: 2017Q4

REPORT INFORMATION
  Report Type: Spontaneous
  Country: US (occurrence: US)
  Receive Date: 20171230
  Receipt Date: 20171230
  Transmission Date: 20180321
  Serious: No
  Sender: FDA-Public Use
  Company Number: US-BIOGEN-2017BI00501722

PATIENT
  Age: 72 Year
  Sex: Female

DRUGS (1)
  1. TECFIDERA [Suspect]
     Active Substance: DIMETHYL FUMARATE
     Indication: MULTIPLE SCLEROSIS
     Route: 065

REACTIONS (7)
  - Bladder disorder [Unknown]
  - Headache [Unknown]
  - Urinary retention [Unknown]
  - Urinary tract infection [Unknown]
  - Vertigo [Unknown]
  - Infection [Unknown]
  - Road traffic accident [Recovered/Resolved]
